FAERS Safety Report 10346609 (Version 1)
Quarter: 2014Q3

REPORT INFORMATION
  Report Type: Spontaneous
  Country: US (occurrence: US)
  Receive Date: 20140729
  Receipt Date: 20140729
  Transmission Date: 20150326
  Serious: No
  Sender: FDA-Public Use
  Company Number: US-BIOGENIDEC-2014BI073864

PATIENT
  Sex: Female

DRUGS (1)
  1. TYSABRI [Suspect]
     Active Substance: NATALIZUMAB
     Indication: MULTIPLE SCLEROSIS
     Route: 042
     Dates: start: 20140416

REACTIONS (9)
  - Diarrhoea [Unknown]
  - Dyspepsia [Unknown]
  - Adverse event [Unknown]
  - Multiple sclerosis [Unknown]
  - Gait disturbance [Unknown]
  - Burning sensation [Unknown]
  - Dizziness [Unknown]
  - Urinary incontinence [Unknown]
  - Faecal incontinence [Unknown]

NARRATIVE: CASE EVENT DATE: 2014
